FAERS Safety Report 5480345-7 (Version None)
Quarter: 2007Q3

REPORT INFORMATION
  Report Type: 
  Country: None (occurrence: None)
  Receive Date: 20070914
  Receipt Date: 20061205
  Transmission Date: 20080115
  Serious: Yes (Hospitalization)
  Sender: FDA-Public Use
  Company Number: 06P-163-0352420-00

PATIENT
  Age: 74 Year
  Sex: Female
  Weight: 68.0396 kg

DRUGS (4)
  1. SYNTHROID [Suspect]
     Indication: HYPOTHYROIDISM
     Dosage: 0.1 MG, 1 IN 1 D, PER ORAL; 0.88 MG, 1 IN 1 D, PER ORAL
     Route: 048
     Dates: start: 19510101, end: 20060901
  2. SYNTHROID [Suspect]
     Indication: HYPOTHYROIDISM
     Dosage: 0.1 MG, 1 IN 1 D, PER ORAL; 0.88 MG, 1 IN 1 D, PER ORAL
     Route: 048
     Dates: start: 20060901
  3. CYANOCOBALAMIN [Concomitant]
  4. ASCORBIC ACID [Concomitant]

REACTIONS (6)
  - BLOOD THYROID STIMULATING HORMONE INCREASED [None]
  - FATIGUE [None]
  - GLAUCOMA [None]
  - MYOCARDIAL INFARCTION [None]
  - NAUSEA [None]
  - TREMOR [None]
